FAERS Safety Report 6025261-7 (Version None)
Quarter: 2008Q4

REPORT INFORMATION
  Report Type: 
  Country: None (occurrence: None)
  Receive Date: 20081229
  Receipt Date: 20081229
  Transmission Date: 20090506
  Serious: Yes (Life-Threatening, Hospitalization, Other)
  Sender: FDA-Public Use
  Company Number: None

PATIENT
  Age: 33 Year
  Sex: Female
  Weight: 97.977 kg

DRUGS (2)
  1. PAXIL [Suspect]
     Indication: DEPRESSION
     Dosage: 20MG ONCE DAILY PO
     Route: 048
     Dates: start: 19920201, end: 20050601
  2. PAXIL [Suspect]
     Indication: PANIC DISORDER
     Dosage: 20MG ONCE DAILY PO
     Route: 048
     Dates: start: 19920201, end: 20050601

REACTIONS (3)
  - DEPRESSION [None]
  - PANIC ATTACK [None]
  - SUICIDAL IDEATION [None]
